FAERS Safety Report 6345190-9 (Version None)
Quarter: 2009Q3

REPORT INFORMATION
  Report Type: 
  Country: None (occurrence: None)
  Receive Date: 20090909
  Receipt Date: 20090901
  Transmission Date: 20100115
  Serious: Yes (Other)
  Sender: FDA-Public Use
  Company Number: US-JNJFOC-20090901443

PATIENT
  Sex: Male

DRUGS (5)
  1. LEVAQUIN [Suspect]
     Indication: INFECTION PROPHYLAXIS
     Route: 065
  2. LANOXIN [Concomitant]
     Indication: ATRIAL FIBRILLATION
     Route: 065
  3. MITOMYCIN [Concomitant]
     Indication: CHEMOTHERAPY
     Route: 065
  4. WARFARIN SODIUM [Concomitant]
     Indication: ANTICOAGULANT THERAPY
     Route: 065
  5. ATENOLOL [Concomitant]
     Indication: CARDIAC DISORDER
     Route: 065

REACTIONS (2)
  - PAIN IN EXTREMITY [None]
  - WOUND HAEMORRHAGE [None]
